FAERS Safety Report 8019943-5 (Version None)
Quarter: 2012Q1

REPORT INFORMATION
  Report Type: 
  Country: None (occurrence: None)
  Receive Date: 20120103
  Receipt Date: 20111226
  Transmission Date: 20120608
  Serious: Yes (Hospitalization, Other)
  Sender: FDA-Public Use
  Company Number: FR-ABBOTT-11P-056-0886841-00

PATIENT
  Sex: Male

DRUGS (9)
  1. ALFUZOSIN HCL [Concomitant]
     Indication: PRODUCT USED FOR UNKNOWN INDICATION
     Dosage: ONCE
     Dates: start: 20111129, end: 20111129
  2. VITAMIN B6 [Concomitant]
     Indication: PRODUCT USED FOR UNKNOWN INDICATION
  3. CLARITHROMYCIN [Suspect]
     Indication: PRODUCT USED FOR UNKNOWN INDICATION
     Route: 048
     Dates: start: 20111129, end: 20111130
  4. MICONAZOLE [Suspect]
     Indication: PRODUCT USED FOR UNKNOWN INDICATION
     Route: 048
     Dates: start: 20111101, end: 20111101
  5. DOTAREM [Suspect]
     Indication: PRODUCT USED FOR UNKNOWN INDICATION
     Route: 042
     Dates: start: 20111125, end: 20111125
  6. ETHAMBUTOL HYDROCHLORIDE [Suspect]
     Indication: PRODUCT USED FOR UNKNOWN INDICATION
     Route: 048
     Dates: start: 20111129, end: 20111130
  7. CLARITHROMYCIN [Suspect]
  8. VITAMIN B1 TAB [Concomitant]
     Indication: PRODUCT USED FOR UNKNOWN INDICATION
  9. HEMISUCCINATE OF HYDROCORTISONE [Concomitant]
     Indication: PRODUCT USED FOR UNKNOWN INDICATION
     Dates: start: 20111101

REACTIONS (13)
  - AGRANULOCYTOSIS [None]
  - NERVOUS SYSTEM DISORDER [None]
  - HALLUCINATION [None]
  - AGITATION [None]
  - TREATMENT NONCOMPLIANCE [None]
  - HYPOTENSION [None]
  - COMMUNICATION DISORDER [None]
  - FULL BLOOD COUNT ABNORMAL [None]
  - ATYPICAL MYCOBACTERIAL INFECTION [None]
  - CONFUSIONAL STATE [None]
  - PANCYTOPENIA [None]
  - ABNORMAL BEHAVIOUR [None]
  - ADRENAL INSUFFICIENCY [None]
